FAERS Safety Report 9383023 (Version 2)
Quarter: 2014Q1

REPORT INFORMATION
  Report Type: Spontaneous
  Country: DK (occurrence: DK)
  Receive Date: 20130704
  Receipt Date: 20140307
  Transmission Date: 20141002
  Serious: Yes (Hospitalization, Other)
  Sender: FDA-Public Use
  Company Number: DK-MERCK-1306DNK013586

PATIENT
  Age: 33 Year
  Sex: Female
  Weight: 50 kg

DRUGS (5)
  1. PUREGON [Suspect]
     Indication: BLOOD FOLLICLE STIMULATING HORMONE
     Dosage: 1025 IE DISTRIBUTED OVER 9 DAYS
     Route: 058
     Dates: start: 20120419
  2. PUREGON [Suspect]
     Indication: BLOOD FOLLICLE STIMULATING HORMONE
  3. PREGNYL [Suspect]
     Indication: BLOOD FOLLICLE STIMULATING HORMONE
     Dosage: 1025 IE DISTRIBUTED OVER 9 DAYS
     Route: 058
     Dates: start: 20130419
  4. PREGNYL [Suspect]
     Indication: BLOOD FOLLICLE STIMULATING HORMONE
  5. CETROTIDE [Suspect]
     Indication: BLOOD FOLLICLE STIMULATING HORMONE
     Dates: start: 20120419

REACTIONS (7)
  - Jugular vein thrombosis [Recovered/Resolved with Sequelae]
  - Ovarian hyperstimulation syndrome [Recovered/Resolved with Sequelae]
  - Jugular vein thrombosis [Recovered/Resolved with Sequelae]
  - Pancreatitis [Unknown]
  - Cholecystectomy [Recovered/Resolved]
  - Cholelithiasis [Unknown]
  - Abdominal pain [Unknown]
